FAERS Safety Report 25457373 (Version 2)
Quarter: 2025Q3

REPORT INFORMATION
  Report Type: Spontaneous
  Country: US (occurrence: US)
  Receive Date: 20250619
  Receipt Date: 20250708
  Transmission Date: 20251020
  Serious: No
  Sender: PHARMING GROUP
  Company Number: US-PHARMING-PHAUS2025000878

PATIENT

DRUGS (1)
  1. RUCONEST [Suspect]
     Active Substance: CONESTAT ALFA
     Indication: Hereditary angioedema
     Dosage: 2250 IU, TWICE WEEKLY
     Route: 042
     Dates: start: 201908

REACTIONS (2)
  - Condition aggravated [Unknown]
  - Intentional product use issue [Unknown]
